FAERS Safety Report 13768407 (Version 1)
Quarter: 2017Q3

REPORT INFORMATION
  Report Type: Spontaneous
  Country: US (occurrence: US)
  Receive Date: 20170719
  Receipt Date: 20170719
  Transmission Date: 20171127
  Serious: Yes (Disabling)
  Sender: FDA-Public Use
  Company Number: None

PATIENT
  Age: 43 Year
  Sex: Male
  Weight: 213.7 kg

DRUGS (1)
  1. OXYCODONE 15MG [Suspect]
     Active Substance: OXYCODONE
     Indication: BACK PAIN
     Dosage: ?          OTHER STRENGTH:MG;QUANTITY:120 TABLET(S);?EVERY 6 HOURS ORAL
     Route: 048
     Dates: end: 20170623

REACTIONS (3)
  - Product substitution issue [None]
  - Drug ineffective [None]
  - Pain [None]

NARRATIVE: CASE EVENT DATE: 20170623
